FAERS Safety Report 20978962 (Version 13)
Quarter: 2023Q2

REPORT INFORMATION
  Report Type: Report from Study
  Country: US (occurrence: None)
  Receive Date: 20220619
  Receipt Date: 20230504
  Transmission Date: 20230722
  Serious: Yes (Other)
  Sender: FDA-Public Use
  Company Number: US-ROCHE-3116765

PATIENT
  Age: 87 Year
  Sex: Female
  Weight: 64.4 kg

DRUGS (19)
  1. RANIBIZUMAB [Suspect]
     Active Substance: RANIBIZUMAB
     Indication: Neovascular age-related macular degeneration
     Dosage: START DATE OF MOST RECENT DOSE OF STUDY DRUG 100 MG/ML?PRIOR TO SAE ON 24-JUN-2021?EVERY 24 WEEKS
     Route: 050
     Dates: start: 20210107
  2. RANIBIZUMAB [Suspect]
     Active Substance: RANIBIZUMAB
  3. RANIBIZUMAB [Suspect]
     Active Substance: RANIBIZUMAB
  4. RANIBIZUMAB [Suspect]
     Active Substance: RANIBIZUMAB
  5. RANIBIZUMAB [Suspect]
     Active Substance: RANIBIZUMAB
  6. TAMOXIFEN [Concomitant]
     Active Substance: TAMOXIFEN
     Indication: Breast cancer
     Dates: end: 20230309
  7. PRAVASTATIN [Concomitant]
     Active Substance: PRAVASTATIN
     Indication: Myocardial infarction
  8. TYLENOL PM [Concomitant]
     Active Substance: ACETAMINOPHEN\DIPHENHYDRAMINE
     Indication: Insomnia
     Dates: end: 20220802
  9. TOBRAMYCIN [Concomitant]
     Active Substance: TOBRAMYCIN
     Dates: start: 20211203, end: 20211211
  10. TOBRAMYCIN [Concomitant]
     Active Substance: TOBRAMYCIN
     Dates: start: 20220528, end: 20220604
  11. TOBRAMYCIN [Concomitant]
     Active Substance: TOBRAMYCIN
     Dates: start: 20220821, end: 20220830
  12. PAXLOVID [Concomitant]
     Active Substance: NIRMATRELVIR\RITONAVIR
     Indication: COVID-19
     Dates: start: 20220330, end: 20220403
  13. PAXLOVID [Concomitant]
     Active Substance: NIRMATRELVIR\RITONAVIR
     Dates: start: 20220805, end: 20220809
  14. TYLENOL [Concomitant]
     Active Substance: ACETAMINOPHEN
     Indication: Analgesic therapy
     Dates: start: 20220519, end: 20220526
  15. TYLENOL [Concomitant]
     Active Substance: ACETAMINOPHEN
     Dates: start: 20220822, end: 20220822
  16. ALEVE [Concomitant]
     Active Substance: NAPROXEN SODIUM
     Indication: Analgesic therapy
     Route: 048
     Dates: start: 20220519, end: 20220526
  17. ALPRAZOLAM [Concomitant]
     Active Substance: ALPRAZOLAM
     Indication: Anxiety
     Dates: start: 20200206
  18. RANIBIZUMAB [Concomitant]
     Active Substance: RANIBIZUMAB
     Dosage: DOSE: 10 MG/ML
     Route: 050
     Dates: start: 20191115
  19. RANIBIZUMAB [Concomitant]
     Active Substance: RANIBIZUMAB
     Route: 042
     Dates: start: 20221103

REACTIONS (2)
  - Device issue [Unknown]
  - No adverse event [Unknown]

NARRATIVE: CASE EVENT DATE: 20211207
